FAERS Safety Report 4650580-6 (Version None)
Quarter: 2005Q2

REPORT INFORMATION
  Report Type: 
  Country: None (occurrence: None)
  Receive Date: 20050426
  Receipt Date: 20050308
  Transmission Date: 20051028
  Serious: Yes (Other)
  Sender: FDA-Public Use
  Company Number: 200511306BBE

PATIENT
  Sex: Male

DRUGS (10)
  1. KOATE [Suspect]
     Indication: HAEMOPHILIA
  2. KONYNE [Suspect]
     Indication: HAEMOPHILIA
  3. FACTOR VIII (BAXTER) (FACTOR VIII) [Suspect]
     Indication: HAEMOPHILIA
  4. FACTOR IX COMPLEX [Suspect]
     Indication: HAEMOPHILIA
  5. FACTOR IX COMPLEX [Suspect]
     Indication: HAEMOPHILIA
  6. FACTOR VIII (AVENTIS BEHRING) (FACTOR VIII) [Suspect]
     Indication: HAEMOPHILIA
  7. FACTOR IX COMPLEX [Suspect]
     Indication: HAEMOPHILIA
  8. FACTOR VIII (ALPHA THERAPEUTICS) (FACTOR VIII) [Suspect]
  9. FACTOR IX COMPLEX [Suspect]
  10. FACTOR VIII (ARMOUR) (FACTOR VIII) [Suspect]

REACTIONS (2)
  - ADVERSE EVENT [None]
  - PHARMACEUTICAL PRODUCT COMPLAINT [None]
